FAERS Safety Report 9130794 (Version 1)
Quarter: 2013Q1

REPORT INFORMATION
  Report Type: Spontaneous
  Country: US (occurrence: US)
  Receive Date: 20130301
  Receipt Date: 20130301
  Transmission Date: 20140127
  Serious: No
  Sender: FDA-Public Use
  Company Number: US-009507513-1303USA000011

PATIENT
  Sex: Female

DRUGS (1)
  1. EMEND [Suspect]
     Indication: CHEMOTHERAPY
     Dosage: FIRST PILL THE DAY OF THE TREATMENT, 80 MCG ON DAY 2 AND DAY 3
     Route: 048
     Dates: start: 20130118

REACTIONS (4)
  - Wrong technique in drug usage process [Unknown]
  - Underdose [Unknown]
  - Product quality issue [Unknown]
  - No adverse event [Unknown]
